FAERS Safety Report 5692575-X (Version None)
Quarter: 2008Q2

REPORT INFORMATION
  Report Type: 
  Country: None (occurrence: None)
  Receive Date: 20080328
  Receipt Date: 20071227
  Transmission Date: 20081010
  Serious: No
  Sender: FDA-Public Use
  Company Number: US-WYE-H01945408

PATIENT

DRUGS (1)
  1. TORISEL [Suspect]
     Dosage: DOSE DETAILS UNKNOWN, INTRAVENOUS
     Route: 042

REACTIONS (1)
  - EXTRAVASATION [None]
